FAERS Safety Report 11911198 (Version 3)
Quarter: 2018Q3

REPORT INFORMATION
  Report Type: Spontaneous
  Country: US (occurrence: US)
  Receive Date: 20160112
  Receipt Date: 20180813
  Transmission Date: 20181010
  Serious: No
  Sender: FDA-Public Use
  Company Number: US-PFIZER INC-2015463223

PATIENT
  Age: 65 Year
  Sex: Male
  Weight: 71 kg

DRUGS (13)
  1. ATROVENT [Concomitant]
     Active Substance: IPRATROPIUM BROMIDE
     Dosage: UNK
     Route: 045
  2. KETOCONAZOLE. [Concomitant]
     Active Substance: KETOCONAZOLE
     Dosage: 3 TIMES WEEKLY TO WASH THE SCALP FOR 3 MINUTES THEN RINSE
  3. TEMOVATE [Concomitant]
     Active Substance: CLOBETASOL PROPIONATE
     Dosage: UNK, 2 TIMES DAILY TO AFFECTED AREA AS DIRECTED
  4. NEURONTIN [Concomitant]
     Active Substance: GABAPENTIN
     Dosage: 300 MG, 3 TIMES DAILY
     Route: 048
  5. MIRALAX [Concomitant]
     Active Substance: POLYETHYLENE GLYCOL 3350
     Dosage: UNK, AS NEEDED
     Route: 048
  6. CRANBERRY. [Concomitant]
     Active Substance: CRANBERRY
     Dosage: 2 CAPSULES, 3 TIMES DAILY
     Route: 048
  7. LIORESAL [Concomitant]
     Active Substance: BACLOFEN
     Indication: MUSCLE SPASMS
     Dosage: 20 MG, 3 TIMES DAILY (AS NEEDED)
     Route: 048
  8. BACLOFEN. [Concomitant]
     Active Substance: BACLOFEN
     Dosage: 40 ML, UNK
     Route: 037
  9. MIDODRINE [Concomitant]
     Active Substance: MIDODRINE
     Dosage: 5 MG, 3X/DAY
     Route: 048
  10. TOPICORT [Concomitant]
     Active Substance: DESOXIMETASONE
     Dosage: UNK, 2 TIMES DAILY
     Route: 061
  11. NYSTATIN. [Concomitant]
     Active Substance: NYSTATIN
     Dosage: UNK, TWICE DAILY
     Route: 061
  12. OMEPRAZOLE. [Concomitant]
     Active Substance: OMEPRAZOLE
     Dosage: 20 MG, TWICE DAILY
     Route: 048
  13. LYRICA [Suspect]
     Active Substance: PREGABALIN
     Dosage: 300 MG, 3X/DAY
     Route: 048

REACTIONS (2)
  - Prescribed overdose [Unknown]
  - Tinea cruris [Unknown]
